FAERS Safety Report 4764936-4 (Version None)
Quarter: 2005Q3

REPORT INFORMATION
  Report Type: 
  Country: None (occurrence: None)
  Receive Date: 20050907
  Receipt Date: 20050824
  Transmission Date: 20060218
  Serious: Yes (Hospitalization)
  Sender: FDA-Public Use
  Company Number: 214101

PATIENT
  Age: 71 Year
  Sex: Female
  Weight: 50.8 kg

DRUGS (11)
  1. AVASTIN [Suspect]
     Indication: PANCREATIC CARCINOMA
     Dosage: 10 MG, DAYS 1+15
     Dates: start: 20050310, end: 20050425
  2. TAXOTERE [Suspect]
     Indication: PANCREATIC CARCINOMA
     Dosage: 35 MG, DAYS 1,8,15
     Dates: start: 20050310, end: 20050414
  3. SYNTHROID [Concomitant]
  4. COSOPT [Concomitant]
  5. PROTONIX [Concomitant]
  6. AMBIEN [Concomitant]
  7. PANCREATIC ENZYMES (PANCREATIC ENZYME) [Concomitant]
  8. OXYCONTIN [Concomitant]
  9. OXYCODONE HCL [Concomitant]
  10. SENOKOT [Concomitant]
  11. COLACE (DOCUSATE SODIUM) [Concomitant]

REACTIONS (15)
  - BILE DUCT STENOSIS [None]
  - CATHETER SITE PAIN [None]
  - DEHYDRATION [None]
  - HAEMOGLOBIN DECREASED [None]
  - HEPATIC LESION [None]
  - LIVER ABSCESS [None]
  - MALIGNANT NEOPLASM PROGRESSION [None]
  - NEUTROPHIL COUNT INCREASED [None]
  - PANCREATIC CARCINOMA [None]
  - PERITONITIS BACTERIAL [None]
  - RECTAL HAEMORRHAGE [None]
  - SEPSIS [None]
  - STENT OCCLUSION [None]
  - THROMBOSIS [None]
  - TREMOR [None]
